FAERS Safety Report 4590298-1 (Version None)
Quarter: 2005Q1

REPORT INFORMATION
  Report Type: 
  Country: None (occurrence: None)
  Receive Date: 20050217
  Receipt Date: 20050204
  Transmission Date: 20050727
  Serious: Yes (Hospitalization)
  Sender: FDA-Public Use
  Company Number: 2005AP01006

PATIENT
  Age: 36 Year
  Sex: Female

DRUGS (3)
  1. BUPIVACAINE HCL [Suspect]
     Indication: SENSORY DISTURBANCE
     Dates: start: 20040401
  2. FENTANYL CITRATE [Suspect]
     Indication: SENSORY DISTURBANCE
     Dates: start: 20040401
  3. CLOZARIL [Suspect]
     Indication: SCHIZOPHRENIA
     Dosage: 300 MG DAILY PO
     Route: 048
     Dates: start: 20030925

REACTIONS (3)
  - DRUG INTERACTION [None]
  - RESPIRATORY DEPRESSION [None]
  - SEDATION [None]
